FAERS Safety Report 19881426 (Version 1)
Quarter: 2021Q3

REPORT INFORMATION
  Report Type: Spontaneous
  Country: BE (occurrence: BE)
  Receive Date: 20210924
  Receipt Date: 20210924
  Transmission Date: 20211014
  Serious: Yes (Hospitalization, Other)
  Sender: FDA-Public Use
  Company Number: BE-MYLANLABS-2021M1064631

PATIENT
  Age: 49 Year
  Sex: Male

DRUGS (22)
  1. BLEOMYCIN [Suspect]
     Active Substance: BLEOMYCIN SULFATE
     Indication: HODGKIN^S DISEASE
     Dosage: UNK, BASELINE BEACOPP REGIMEN
  2. CYCLOPHOSPHAMIDE. [Suspect]
     Active Substance: CYCLOPHOSPHAMIDE
     Indication: CHEMOTHERAPY
     Dosage: UNK, BASELINE BEACOPP REGIMEN
  3. ADRIAMYCIN [Suspect]
     Active Substance: DOXORUBICIN HYDROCHLORIDE
     Indication: HODGKIN^S DISEASE
     Dosage: UNK, ESCALATED BEACOPP REGIMEN (4 CYCLES)
     Dates: start: 2006, end: 200604
  4. CYCLOPHOSPHAMIDE. [Suspect]
     Active Substance: CYCLOPHOSPHAMIDE
     Indication: HODGKIN^S DISEASE
     Dosage: UNK, ESCALATED BEACOPP REGIMEN (4 CYCLES)
     Dates: start: 2006, end: 200604
  5. ETOPOSIDE. [Suspect]
     Active Substance: ETOPOSIDE
     Indication: NON-HODGKIN^S LYMPHOMA
     Dosage: UNK, BASELINE BEACOPP REGIMEN
     Route: 065
  6. ONCOVIN [Suspect]
     Active Substance: VINCRISTINE SULFATE
     Dosage: UNK
     Dates: start: 200602
  7. PREDNISONE. [Suspect]
     Active Substance: PREDNISONE
     Indication: HODGKIN^S DISEASE
     Dosage: UNK, ESCALATED BEACOPP REGIMEN (4 CYCLES)
     Dates: start: 2006, end: 200604
  8. PREDNISONE. [Suspect]
     Active Substance: PREDNISONE
     Indication: CHEMOTHERAPY
     Dosage: UNK, BASELINE BEACOPP REGIMEN
  9. ADRIAMYCIN [Suspect]
     Active Substance: DOXORUBICIN HYDROCHLORIDE
     Indication: CHEMOTHERAPY
     Dosage: UNK, BASELINE BEACOPP REGIMEN
  10. LAMIVUDINE. [Suspect]
     Active Substance: LAMIVUDINE
     Indication: PRODUCT USED FOR UNKNOWN INDICATION
     Dosage: UNK
  11. ADRIAMYCIN [Suspect]
     Active Substance: DOXORUBICIN HYDROCHLORIDE
     Dosage: UNK
     Dates: start: 200602
  12. BLEOMYCIN [Suspect]
     Active Substance: BLEOMYCIN SULFATE
     Indication: CHEMOTHERAPY
     Dosage: UNK, ESCALATED BEACOPP REGIMEN (4 CYCLES)
     Dates: start: 2006, end: 200604
  13. PROCARBAZINE [Suspect]
     Active Substance: PROCARBAZINE
     Dosage: UNK
     Dates: start: 200602
  14. PREDNISONE. [Suspect]
     Active Substance: PREDNISONE
     Dosage: UNK
     Dates: start: 200602
  15. PROCARBAZINE [Suspect]
     Active Substance: PROCARBAZINE
     Indication: CHEMOTHERAPY
     Dosage: UNK, BASELINE BEACOPP REGIMEN
  16. ONCOVIN [Suspect]
     Active Substance: VINCRISTINE SULFATE
     Indication: HODGKIN^S DISEASE
     Dosage: UNK, BASELINE BEACOPP REGIMEN
  17. ONCOVIN [Suspect]
     Active Substance: VINCRISTINE SULFATE
     Indication: CHEMOTHERAPY
     Dosage: UNK, ESCALATED BEACOPP REGIMEN (4 CYCLES)
     Dates: start: 2006, end: 200604
  18. CYCLOPHOSPHAMIDE. [Suspect]
     Active Substance: CYCLOPHOSPHAMIDE
     Dosage: UNK
     Dates: start: 200602
  19. ETOPOSIDE. [Suspect]
     Active Substance: ETOPOSIDE
     Indication: CHEMOTHERAPY
     Dosage: UNK, ESCALATED BEACOPP REGIMEN (4 CYCLES)
     Route: 065
     Dates: start: 2006, end: 200604
  20. ETOPOSIDE. [Suspect]
     Active Substance: ETOPOSIDE
     Dosage: UNK
     Dates: start: 200602
  21. BLEOMYCIN [Suspect]
     Active Substance: BLEOMYCIN SULFATE
     Dosage: UNK
     Dates: start: 200602
  22. PROCARBAZINE [Suspect]
     Active Substance: PROCARBAZINE
     Indication: HODGKIN^S DISEASE
     Dosage: UNK, ESCALATED BEACOPP REGIMEN (4 CYCLES)
     Dates: start: 2006, end: 200604

REACTIONS (4)
  - Hepatic encephalopathy [Recovered/Resolved]
  - Hepatic failure [Recovered/Resolved]
  - Hepatitis B [Unknown]
  - Hepatitis B reactivation [Recovered/Resolved]

NARRATIVE: CASE EVENT DATE: 200606
